FAERS Safety Report 7982243-3 (Version None)
Quarter: 2011Q4

REPORT INFORMATION
  Report Type: 
  Country: None (occurrence: None)
  Receive Date: 20111215
  Receipt Date: 20111215
  Transmission Date: 20120403
  Serious: Yes (Life-Threatening, Other)
  Sender: FDA-Public Use
  Company Number: None

PATIENT
  Age: 49 Year
  Sex: Female
  Weight: 71.667 kg

DRUGS (11)
  1. XYZAL [Concomitant]
  2. LYRICA [Concomitant]
  3. MYCOPHENOLATE MOFETIL (CELLCEPT) [Concomitant]
  4. HYDROCODONE BITARTRATE [Concomitant]
  5. FLEXERIL [Concomitant]
  6. VIT. D-3 [Concomitant]
  7. TRAMADOL HCL [Concomitant]
  8. BENDRYL [Concomitant]
  9. METHYLPREDNISOLONE ACETATE [Concomitant]
  10. CYMBALTA [Suspect]
     Indication: PAIN
     Dosage: 30MG
     Route: 048
     Dates: start: 20110401, end: 20111210
  11. CYMBALTA [Suspect]
     Indication: EMOTIONAL DISORDER
     Dosage: 30MG
     Route: 048
     Dates: start: 20110401, end: 20111210

REACTIONS (7)
  - INJURY [None]
  - NEURALGIA [None]
  - MUSCULOSKELETAL STIFFNESS [None]
  - MUSCLE FATIGUE [None]
  - ASTHENIA [None]
  - BALANCE DISORDER [None]
  - BLOOD CREATINE PHOSPHOKINASE INCREASED [None]
